FAERS Safety Report 7903535-X (Version None)
Quarter: 2011Q4

REPORT INFORMATION
  Report Type: 
  Country: None (occurrence: None)
  Receive Date: 20111107
  Receipt Date: 20111025
  Transmission Date: 20120403
  Serious: Yes (Other)
  Sender: FDA-Public Use
  Company Number: JP-2011-11313

PATIENT
  Age: 86 Year
  Sex: Male

DRUGS (6)
  1. CRESTOR [Concomitant]
  2. AMLODIPINE (AMLODIPINE BESILATE) TABLET [Concomitant]
  3. ZETIA (EZETIMIBE) TABLET [Concomitant]
  4. PLETAL [Suspect]
     Indication: CEREBRAL INFARCTION
     Dosage: 200 MG MILLIGRAM(S), DAILY DOSE, ORAL
     Route: 048
     Dates: start: 20101201
  5. PREMINENT (HYDROCHLOROTHIAZIDE, LOSARTAN POTASSIUM) TABLET [Concomitant]
  6. ASPIRIN [Concomitant]

REACTIONS (2)
  - NEOPLASM MALIGNANT [None]
  - ANAEMIA [None]
